FAERS Safety Report 9010602 (Version 1)
Quarter: 2013Q1

REPORT INFORMATION
  Report Type: Spontaneous
  Country: US (occurrence: US)
  Receive Date: 20130109
  Receipt Date: 20130109
  Transmission Date: 20140127
  Serious: Yes (Hospitalization)
  Sender: FDA-Public Use
  Company Number: US-009507513-1301USA001958

PATIENT
  Age: 35 Year
  Sex: Male

DRUGS (4)
  1. SINGULAIR [Suspect]
     Indication: ASTHMA
     Dosage: 1 DF, QD
     Route: 048
  2. SEREVENT DISKUS [Suspect]
     Dosage: 2 DF, BID
     Route: 055
  3. PULMICORT [Suspect]
  4. OROKEN [Concomitant]

REACTIONS (2)
  - Pneumonia [Unknown]
  - Cardiomyopathy [Unknown]
